FAERS Safety Report 5907696-3 (Version None)
Quarter: 2008Q4

REPORT INFORMATION
  Report Type: 
  Country: None (occurrence: None)
  Receive Date: 20081003
  Receipt Date: 20030616
  Transmission Date: 20090506
  Serious: Yes (Death, Disabling, Other)
  Sender: FDA-Public Use
  Company Number: US-ROCHE-340348

PATIENT
  Age: 67 Year
  Sex: Male

DRUGS (17)
  1. CELLCEPT [Suspect]
     Route: 065
  2. REGLAN [Concomitant]
  3. MORPHINE [Concomitant]
  4. LASIX [Concomitant]
  5. PEPCID [Concomitant]
  6. TYLENOL (CAPLET) [Concomitant]
  7. VASOTEC [Concomitant]
  8. LABETALOL HCL [Concomitant]
  9. CATAPRESSAN [Concomitant]
  10. LANOXIN [Concomitant]
  11. CYCLOSPORINE [Concomitant]
  12. PROTONIX [Concomitant]
  13. HUMALOG [Concomitant]
  14. LANTUS [Concomitant]
  15. SOLU-CORTEF [Concomitant]
  16. ZOFRAN [Concomitant]
  17. COLCHICINE [Concomitant]

REACTIONS (12)
  - ABSCESS [None]
  - ACIDOSIS [None]
  - ARRHYTHMIA [None]
  - DIVERTICULUM [None]
  - ELECTROMECHANICAL DISSOCIATION [None]
  - FLUID OVERLOAD [None]
  - HYPOGLYCAEMIA [None]
  - HYPOTENSION [None]
  - MULTI-ORGAN FAILURE [None]
  - RENAL TUBULAR NECROSIS [None]
  - RESPIRATORY FAILURE [None]
  - SMALL INTESTINAL OBSTRUCTION [None]
